FAERS Safety Report 5835213-5 (Version None)
Quarter: 2008Q3

REPORT INFORMATION
  Report Type: 
  Country: None (occurrence: None)
  Receive Date: 20080801
  Receipt Date: 20080716
  Transmission Date: 20090109
  Serious: Yes (Death)
  Sender: FDA-Public Use
  Company Number: B0531225A

PATIENT

DRUGS (4)
  1. ZIDOVUDINE [Suspect]
     Indication: HIV INFECTION
  2. CO-TRIMOXAZOLE (FORMULATION UNKNOWN) (GENERIC) (SULFAMETHOXAZOLE/TRIME [Suspect]
  3. TENOFOVIR DISOPROXIL FUMARATE [Concomitant]
  4. STAVUDINE [Concomitant]

REACTIONS (5)
  - ANAEMIA [None]
  - ESCHERICHIA SEPSIS [None]
  - GLOMERULAR FILTRATION RATE DECREASED [None]
  - NEUTROPENIA [None]
  - RENAL FAILURE ACUTE [None]
